FAERS Safety Report 5384111-2 (Version None)
Quarter: 2007Q3

REPORT INFORMATION
  Report Type: 
  Country: None (occurrence: None)
  Receive Date: 20070709
  Receipt Date: 20060707
  Transmission Date: 20080115
  Serious: Yes (Hospitalization)
  Sender: FDA-Public Use
  Company Number: US-2006-018316

PATIENT
  Age: 81 Year
  Sex: Female
  Weight: 81 kg

DRUGS (2)
  1. ULTRAVIST 300 [Suspect]
     Indication: COMPUTERISED TOMOGRAM
     Dosage: 100 ML, 1 DOSE, INTRAVENOUS
     Route: 042
     Dates: start: 20060621, end: 20060621
  2. TENERETIC (CHLORTALIDONE) [Concomitant]

REACTIONS (7)
  - ANAPHYLACTIC REACTION [None]
  - CHEST PAIN [None]
  - DYSPNOEA [None]
  - LIP SWELLING [None]
  - OEDEMA MOUTH [None]
  - PARAESTHESIA [None]
  - PRURITUS [None]
